FAERS Safety Report 6056983-X (Version None)
Quarter: 2009Q1

REPORT INFORMATION
  Report Type: 
  Country: None (occurrence: None)
  Receive Date: 20090126
  Receipt Date: 20090126
  Transmission Date: 20090719
  Serious: Yes (Life-Threatening, Hospitalization, Disabling, Other)
  Sender: FDA-Public Use
  Company Number: None

PATIENT
  Age: 64 Year
  Sex: Female
  Weight: 64.4108 kg

DRUGS (1)
  1. SULFASALAZINE [Suspect]
     Indication: ARTHRITIS
     Dosage: 500 MG 2 TIMES A DAY PO
     Route: 048
     Dates: start: 20081023, end: 20090104

REACTIONS (12)
  - CHILLS [None]
  - HEADACHE [None]
  - HEART RATE INCREASED [None]
  - HEPATIC ENZYME INCREASED [None]
  - HYPONATRAEMIA [None]
  - MENINGITIS VIRAL [None]
  - MYALGIA [None]
  - NOCTURIA [None]
  - PNEUMONIA [None]
  - SWELLING FACE [None]
  - UROSEPSIS [None]
  - WEIGHT DECREASED [None]
